FAERS Safety Report 17826934 (Version 2)
Quarter: 2020Q3

REPORT INFORMATION
  Report Type: Spontaneous
  Country: FR (occurrence: FR)
  Receive Date: 20200526
  Receipt Date: 20200709
  Transmission Date: 20201102
  Serious: Yes (Other)
  Sender: FDA-Public Use
  Company Number: NVSC2020FR141694

PATIENT

DRUGS (1)
  1. SECUKINUMAB. [Suspect]
     Active Substance: SECUKINUMAB
     Indication: HIDRADENITIS
     Dosage: 300 MG, WEEKLY FOR 5 WEEKS, THEN EVERY 4 WEEKS UP TO 16 WEEKS
     Route: 058

REACTIONS (2)
  - Product use in unapproved indication [Unknown]
  - Crohn^s disease [Recovered/Resolved]
